FAERS Safety Report 5644239-6 (Version None)
Quarter: 2008Q1

REPORT INFORMATION
  Report Type: 
  Country: None (occurrence: None)
  Receive Date: 20080227
  Receipt Date: 20080227
  Transmission Date: 20080703
  Serious: Yes (Hospitalization, Disabling)
  Sender: FDA-Public Use
  Company Number: None

PATIENT
  Age: 44 Year
  Sex: Female
  Weight: 107 kg

DRUGS (5)
  1. ALLI [Suspect]
     Indication: OBESITY
     Dosage: 60 MG TID WITH MEALS PO LESS THAN 1 MONTH
     Route: 048
  2. ALLI [Suspect]
     Indication: WEIGHT CONTROL
     Dosage: 60 MG TID WITH MEALS PO LESS THAN 1 MONTH
     Route: 048
  3. METOPROLOL TARTRATE [Concomitant]
  4. HYDROCHLOROTHIAZIDE [Concomitant]
  5. CITALOPRAM [Concomitant]

REACTIONS (2)
  - ABDOMINAL PAIN [None]
  - ACUTE HEPATIC FAILURE [None]
